FAERS Safety Report 6025492-6 (Version None)
Quarter: 2008Q4

REPORT INFORMATION
  Report Type: 
  Country: None (occurrence: None)
  Receive Date: 20081222
  Receipt Date: 20080929
  Transmission Date: 20090506
  Serious: No
  Sender: FDA-Public Use
  Company Number: US-WYE-H06194608

PATIENT
  Age: 28 Year
  Sex: Female
  Weight: 81.72 kg

DRUGS (3)
  1. PRISTIQ [Suspect]
     Indication: ANXIETY
     Dosage: 150 MG  1X PER 1 DAY, ORAL
     Route: 048
     Dates: start: 20080910, end: 20080924
  2. PRISTIQ [Suspect]
     Indication: BIPOLAR I DISORDER
     Dosage: 150 MG  1X PER 1 DAY, ORAL
     Route: 048
     Dates: start: 20080910, end: 20080924
  3. KLONOPIN [Concomitant]

REACTIONS (2)
  - DRUG INEFFECTIVE [None]
  - MEDICATION RESIDUE [None]
